FAERS Safety Report 4889697-X (Version None)
Quarter: 2006Q1

REPORT INFORMATION
  Report Type: 
  Country: None (occurrence: None)
  Receive Date: 20060120
  Receipt Date: 20060110
  Transmission Date: 20060701
  Serious: Yes (Hospitalization)
  Sender: FDA-Public Use
  Company Number: 2006-137279-NL

PATIENT
  Age: 85 Year
  Sex: Female

DRUGS (9)
  1. MIRTAZAPINE [Suspect]
     Indication: DEPRESSION
     Dosage: 15 MG QD, ORAL
     Route: 048
     Dates: start: 20051124, end: 20051127
  2. PINAVERIUM BROMIDE [Concomitant]
  3. GINKGO BILOBA EXTRACT [Concomitant]
  4. TRIMETAZIDINE HYDROCHLORIDE [Concomitant]
  5. BENZQUERCIN [Concomitant]
  6. TENORDATE [Concomitant]
  7. ACETYLSALICYLATE LYSINE [Concomitant]
  8. RISEDRONATE SODIUM [Concomitant]
  9. ZOLPIDEM TARTRATE [Concomitant]

REACTIONS (2)
  - FALL [None]
  - SOMNOLENCE [None]
